FAERS Safety Report 9685786 (Version 3)
Quarter: 2013Q4

REPORT INFORMATION
  Report Type: Report from Study
  Country: CA (occurrence: CA)
  Receive Date: 20131113
  Receipt Date: 20131209
  Transmission Date: 20140711
  Serious: Yes (Other)
  Sender: FDA-Public Use
  Company Number: CA-ABBVIE-13P-028-1109036-00

PATIENT
  Age: 41 Year
  Sex: Female
  Weight: 96.25 kg

DRUGS (9)
  1. KALETRA 200/50 [Suspect]
     Indication: HIV INFECTION
     Route: 048
     Dates: start: 201305, end: 20130603
  2. KALETRA 200/50 [Suspect]
     Indication: ANTIRETROVIRAL THERAPY
  3. TRUVADA [Concomitant]
     Indication: HIV INFECTION
     Dosage: 200MG/300MG DAILY
     Route: 048
  4. SYNTHROID [Concomitant]
     Indication: THYROID DISORDER
     Route: 048
  5. NORVIR [Concomitant]
     Indication: HIV INFECTION
     Route: 048
  6. ZIAGEN [Concomitant]
     Indication: HIV INFECTION
     Route: 048
  7. 3TC [Concomitant]
     Indication: HIV INFECTION
     Route: 048
  8. REYATAZ [Concomitant]
     Indication: HIV INFECTION
  9. ISENTRESS [Concomitant]
     Indication: HIV INFECTION

REACTIONS (7)
  - Vaginal lesion [Unknown]
  - Drug intolerance [Unknown]
  - Nausea [Recovered/Resolved]
  - Vomiting [Recovered/Resolved]
  - Blood test abnormal [Unknown]
  - Blood test abnormal [Unknown]
  - Viral load increased [Unknown]
